FAERS Safety Report 13214072 (Version 5)
Quarter: 2017Q2

REPORT INFORMATION
  Report Type: Spontaneous
  Country: DE (occurrence: DE)
  Receive Date: 20170210
  Receipt Date: 20170619
  Transmission Date: 20170830
  Serious: Yes (Death, Life-Threatening, Hospitalization, Other)
  Sender: FDA-Public Use
  Company Number: DE-ELI_LILLY_AND_COMPANY-DE201701011024

PATIENT
  Sex: Male
  Weight: 95 kg

DRUGS (1)
  1. ZYPADHERA [Suspect]
     Active Substance: OLANZAPINE PAMOATE
     Indication: PSYCHOTIC DISORDER
     Dosage: UNK, UNKNOWN
     Route: 030
     Dates: start: 20150902, end: 20170125

REACTIONS (8)
  - Pulmonary fibrosis [Unknown]
  - Pulmonary sarcoidosis [Unknown]
  - Loss of consciousness [Unknown]
  - Sudden death [Fatal]
  - Respiratory depression [Unknown]
  - Somnolence [Unknown]
  - Cardiac arrest [Unknown]
  - Syncope [Unknown]

NARRATIVE: CASE EVENT DATE: 20170125
